APPROVED DRUG PRODUCT: ROSIGLITAZONE MALEATE
Active Ingredient: ROSIGLITAZONE MALEATE
Strength: EQ 8MG BASE
Dosage Form/Route: TABLET;ORAL
Application: A076747 | Product #003
Applicant: ANI PHARMACEUTICALS INC
Approved: Jan 25, 2013 | RLD: No | RS: No | Type: DISCN